FAERS Safety Report 7638966-9 (Version None)
Quarter: 2011Q3

REPORT INFORMATION
  Report Type: 
  Country: None (occurrence: None)
  Receive Date: 20110725
  Receipt Date: 20110725
  Transmission Date: 20111222
  Serious: Yes (Hospitalization)
  Sender: FDA-Public Use
  Company Number: None

PATIENT
  Age: 69 Year
  Sex: Male
  Weight: 138.3 kg

DRUGS (2)
  1. LORAZEPAM [Suspect]
     Indication: AGITATION
     Dosage: 1MG PRN IV
     Route: 042
     Dates: start: 20110707, end: 20110709
  2. LORAZEPAM [Suspect]
     Indication: AGGRESSION
     Dosage: 1MG PRN IV
     Route: 042
     Dates: start: 20110707, end: 20110709

REACTIONS (3)
  - SEDATION [None]
  - AGITATION [None]
  - AGGRESSION [None]
